FAERS Safety Report 4940906-8 (Version None)
Quarter: 2006Q1

REPORT INFORMATION
  Report Type: 
  Country: None (occurrence: None)
  Receive Date: 20060313
  Receipt Date: 20060302
  Transmission Date: 20060701
  Serious: Yes (Hospitalization)
  Sender: FDA-Public Use
  Company Number: NSADSS2001037296

PATIENT
  Sex: Female

DRUGS (17)
  1. PROPULSID [Suspect]
     Route: 048
  2. PROPULSID [Suspect]
     Indication: DIABETIC GASTROPARESIS
     Route: 048
  3. NIFEDIPINE [Concomitant]
     Route: 065
  4. FAMOTIDINE [Concomitant]
     Route: 065
  5. INSULIN [Concomitant]
     Indication: DIABETES MELLITUS
     Route: 065
  6. CLONIDINE [Concomitant]
     Route: 065
  7. LORAZEPAM [Concomitant]
     Route: 065
  8. VERAPAMIL [Concomitant]
     Route: 065
  9. QUINAPRIL [Concomitant]
     Route: 065
  10. CIMETIDINE [Concomitant]
     Route: 065
  11. PAROXETINE HCL [Concomitant]
     Route: 065
  12. WARFARIN [Concomitant]
     Route: 065
  13. DIGOXIN [Concomitant]
     Route: 065
  14. POTASSIUM CHLORIDE [Concomitant]
     Route: 065
  15. FERROUS SULFATE TAB [Concomitant]
     Route: 065
  16. NORVASC [Concomitant]
     Route: 048
  17. CATAPRES-TTS-2 [Concomitant]
     Route: 062

REACTIONS (8)
  - ARRHYTHMIA [None]
  - CHEST PAIN [None]
  - CONDITION AGGRAVATED [None]
  - ECTOPIC PREGNANCY [None]
  - ELECTROCARDIOGRAM ABNORMAL [None]
  - ELECTROCARDIOGRAM QT PROLONGED [None]
  - HYPERTENSION [None]
  - RENAL FAILURE [None]
